FAERS Safety Report 9873301 (Version 1)
Quarter: 2014Q1

REPORT INFORMATION
  Report Type: Other
  Country: US (occurrence: US)
  Receive Date: 20140206
  Receipt Date: 20140206
  Transmission Date: 20141002
  Serious: No
  Sender: FDA-Public Use
  Company Number: US-ACORDA-ACO_101256_2014

PATIENT
  Age: 65 Year
  Sex: Female
  Weight: 82.54 kg

DRUGS (2)
  1. AMPYRA [Suspect]
     Indication: GAIT DISTURBANCE
     Dosage: 10 MG, BID
     Route: 048
     Dates: start: 201308, end: 201312
  2. MUSCLE RELAXER [Concomitant]
     Indication: PRODUCT USED FOR UNKNOWN INDICATION
     Dosage: UNK
     Route: 065

REACTIONS (3)
  - Hypokinesia [Recovering/Resolving]
  - Gait disturbance [Recovering/Resolving]
  - Drug ineffective [Unknown]
